FAERS Safety Report 5552886-5 (Version None)
Quarter: 2007Q4

REPORT INFORMATION
  Report Type: 
  Country: None (occurrence: None)
  Receive Date: 20071212
  Receipt Date: 20070629
  Transmission Date: 20080405
  Serious: No
  Sender: FDA-Public Use
  Company Number: US-AMGEN-KDL220907

PATIENT
  Sex: Male
  Weight: 106.2 kg

DRUGS (5)
  1. ENBREL [Suspect]
     Indication: RHEUMATOID ARTHRITIS
     Route: 058
     Dates: start: 20060306
  2. ENBREL [Suspect]
     Indication: ANKYLOSING SPONDYLITIS
  3. PLAQUENIL [Concomitant]
  4. SULFASALAZINE [Concomitant]
  5. VOLTAREN [Concomitant]

REACTIONS (2)
  - ARTHRITIS [None]
  - SYNOVIAL CYST [None]
